FAERS Safety Report 10383997 (Version 1)
Quarter: 2014Q3

REPORT INFORMATION
  Report Type: Spontaneous
  Country: CA (occurrence: CA)
  Receive Date: 20140814
  Receipt Date: 20140814
  Transmission Date: 20150326
  Serious: Yes (Hospitalization, Other)
  Sender: FDA-Public Use
  Company Number: CA-AMGEN-CANSP2014060901

PATIENT
  Age: 84 Year
  Sex: Male
  Weight: 87.98 kg

DRUGS (11)
  1. ADVAIR HFA [Concomitant]
     Active Substance: FLUTICASONE PROPIONATE\SALMETEROL XINAFOATE
  2. XGEVA [Suspect]
     Active Substance: DENOSUMAB
     Indication: PRODUCT USED FOR UNKNOWN INDICATION
     Dosage: 120 MG, Q4WK
     Route: 058
  3. ASA [Concomitant]
     Active Substance: ASPIRIN
  4. SALBUTAMOL [Concomitant]
     Active Substance: ALBUTEROL
  5. XTANDI [Concomitant]
     Active Substance: ENZALUTAMIDE
     Route: 048
  6. ALLOPURINOL. [Concomitant]
     Active Substance: ALLOPURINOL
     Route: 048
  7. MIRTAZAPINE. [Concomitant]
     Active Substance: MIRTAZAPINE
     Route: 048
  8. METOPROLOL [Concomitant]
     Active Substance: METOPROLOL
  9. LANTUS [Concomitant]
     Active Substance: INSULIN GLARGINE
     Route: 058
  10. NITRO-DUR [Concomitant]
     Active Substance: NITROGLYCERIN
  11. PREDNISONE. [Concomitant]
     Active Substance: PREDNISONE

REACTIONS (6)
  - Hypomagnesaemia [Recovering/Resolving]
  - Hypocalcaemia [Recovering/Resolving]
  - Hypophosphataemia [Recovering/Resolving]
  - Blood glucose increased [Recovering/Resolving]
  - Lactic acidosis [Recovering/Resolving]
  - Lethargy [Recovering/Resolving]
